FAERS Safety Report 24123732 (Version 1)
Quarter: 2024Q3

REPORT INFORMATION
  Report Type: Spontaneous
  Country: US (occurrence: US)
  Receive Date: 20240723
  Receipt Date: 20240723
  Transmission Date: 20241017
  Serious: No
  Sender: OTSUKA
  Company Number: US-OTSUKA-2024_007448

PATIENT
  Age: 71 Year
  Sex: Female

DRUGS (4)
  1. REXULTI [Suspect]
     Active Substance: BREXPIPRAZOLE
     Indication: Dementia Alzheimer^s type
     Dosage: 0.5 MG QD FOR 4 DAYS
     Route: 065
     Dates: start: 20230726
  2. REXULTI [Suspect]
     Active Substance: BREXPIPRAZOLE
     Dosage: INCREASED TO 1MG
     Route: 065
     Dates: end: 20230914
  3. REXULTI [Suspect]
     Active Substance: BREXPIPRAZOLE
     Dosage: 2 MG
     Route: 065
     Dates: end: 20240229
  4. REXULTI [Suspect]
     Active Substance: BREXPIPRAZOLE
     Dosage: 1 MG
     Route: 065
     Dates: end: 20240312

REACTIONS (2)
  - Weight increased [Not Recovered/Not Resolved]
  - Drug titration error [Unknown]
